FAERS Safety Report 9539968 (Version 1)
Quarter: 2013Q3

REPORT INFORMATION
  Report Type: Spontaneous
  Country: BR (occurrence: BR)
  Receive Date: 20130920
  Receipt Date: 20130920
  Transmission Date: 20140515
  Serious: Yes (Other)
  Sender: FDA-Public Use
  Company Number: BR-JNJFOC-20130909064

PATIENT
  Sex: Female

DRUGS (4)
  1. REMICADE [Suspect]
     Indication: COLITIS
     Route: 042
     Dates: start: 20130823
  2. IBUPROFEN [Suspect]
     Indication: ARTHRALGIA
     Route: 065
  3. DICLOFENAC [Suspect]
     Indication: PAIN
     Route: 065
  4. MESALAZINE [Concomitant]
     Route: 065

REACTIONS (6)
  - Dyspnoea [Recovered/Resolved]
  - Palpitations [Recovered/Resolved]
  - Infusion related reaction [Recovered/Resolved]
  - Haemorrhage [Unknown]
  - Malaise [Recovered/Resolved]
  - Pain [Unknown]
